FAERS Safety Report 10578415 (Version 1)
Quarter: 2014Q4

REPORT INFORMATION
  Report Type: Spontaneous
  Country: US (occurrence: None)
  Receive Date: 20141111
  Receipt Date: 20141111
  Transmission Date: 20150529
  Serious: Yes (Life-Threatening, Hospitalization, Other)
  Sender: FDA-Public Use
  Company Number: None

PATIENT
  Age: 72 Year
  Sex: Male
  Weight: 72.58 kg

DRUGS (14)
  1. ATENOLOL. [Concomitant]
     Active Substance: ATENOLOL
  2. JANUVIA [Concomitant]
     Active Substance: SITAGLIPTIN PHOSPHATE
  3. ASPIRIN. [Concomitant]
     Active Substance: ASPIRIN
  4. XARELTO [Suspect]
     Active Substance: RIVAROXABAN
     Indication: ATRIAL FIBRILLATION
     Dosage: 1 TAB QD ORAL
     Route: 048
     Dates: start: 20140627, end: 20141106
  5. PASUGREL [Concomitant]
  6. LASIX [Concomitant]
     Active Substance: FUROSEMIDE
  7. LOVAZA [Concomitant]
     Active Substance: OMEGA-3-ACID ETHYL ESTERS
  8. ALLOPURINOL. [Concomitant]
     Active Substance: ALLOPURINOL
  9. XARELTO [Suspect]
     Active Substance: RIVAROXABAN
     Indication: GASTROINTESTINAL HAEMORRHAGE
     Dosage: 1 TAB QD ORAL
     Route: 048
     Dates: start: 20140627, end: 20141106
  10. RANITIDINE [Concomitant]
     Active Substance: RANITIDINE\RANITIDINE HYDROCHLORIDE
  11. FORTESTA [Concomitant]
     Active Substance: TESTOSTERONE
  12. LYRICA [Concomitant]
     Active Substance: PREGABALIN
  13. NIASPIRIN [Concomitant]
  14. IRON [Concomitant]
     Active Substance: IRON

REACTIONS (1)
  - Upper gastrointestinal haemorrhage [None]

NARRATIVE: CASE EVENT DATE: 20141106
